FAERS Safety Report 14871785 (Version 6)
Quarter: 2025Q1

REPORT INFORMATION
  Report Type: Report from Study
  Country: IT (occurrence: IT)
  Receive Date: 20180509
  Receipt Date: 20250331
  Transmission Date: 20250409
  Serious: Yes (Hospitalization)
  Sender: ABBVIE
  Company Number: IT-ABBVIE-18P-083-2346001-00

PATIENT
  Age: 11 Year
  Sex: Male

DRUGS (1)
  1. HUMIRA [Suspect]
     Active Substance: ADALIMUMAB
     Indication: Crohn^s disease
     Route: 058
     Dates: start: 20160423, end: 20180305

REACTIONS (2)
  - IgA nephropathy [Recovered/Resolved]
  - Glomerulonephritis [Recovered/Resolved]

NARRATIVE: CASE EVENT DATE: 20180120
